FAERS Safety Report 16152559 (Version 1)
Quarter: 2019Q2

REPORT INFORMATION
  Report Type: Spontaneous
  Country: US (occurrence: US)
  Receive Date: 20190403
  Receipt Date: 20190403
  Transmission Date: 20190711
  Serious: No
  Sender: FDA-Public Use
  Company Number: US-SA-2019SA088795

PATIENT
  Age: 50 Year
  Sex: Male

DRUGS (7)
  1. FOLIC ACID. [Concomitant]
     Active Substance: FOLIC ACID
     Dosage: UNK
  2. MULTI COMPLETE [Concomitant]
     Dosage: UNK
  3. DOXEPIN [Concomitant]
     Active Substance: DOXEPIN
     Dosage: UNK
  4. DUPIXENT [Suspect]
     Active Substance: DUPILUMAB
     Indication: DERMATITIS ATOPIC
     Dosage: 300 MG, QOW
     Route: 058
     Dates: start: 20190123
  5. PREDNISONE. [Concomitant]
     Active Substance: PREDNISONE
     Dosage: UNK
  6. DESOXIMETASONE. [Concomitant]
     Active Substance: DESOXIMETASONE
     Dosage: UNK
  7. LAMISIL [Concomitant]
     Active Substance: TERBINAFINE HYDROCHLORIDE
     Dosage: UNK

REACTIONS (2)
  - Injection site pruritus [Unknown]
  - Skin exfoliation [Unknown]

NARRATIVE: CASE EVENT DATE: 20190327
